FAERS Safety Report 9639101 (Version 1)
Quarter: 2013Q4

REPORT INFORMATION
  Report Type: Spontaneous
  Country: US (occurrence: US)
  Receive Date: 20131022
  Receipt Date: 20131022
  Transmission Date: 20140711
  Serious: No
  Sender: FDA-Public Use
  Company Number: US-TEVA-439910USA

PATIENT
  Age: 23 Year
  Sex: Female
  Weight: 47.67 kg

DRUGS (3)
  1. PLAN B ONE-STEP [Suspect]
     Indication: MENSTRUATION IRREGULAR
     Dosage: 1.5 MILLIGRAM DAILY;
     Route: 048
     Dates: start: 20131014, end: 20131014
  2. MULTIVITAMINS [Concomitant]
     Indication: MEDICAL DIET
  3. IBUPROFEN [Concomitant]
     Indication: HEADACHE

REACTIONS (4)
  - Diarrhoea [Not Recovered/Not Resolved]
  - Nausea [Not Recovered/Not Resolved]
  - Vomiting [Recovered/Resolved]
  - Menstruation irregular [Not Recovered/Not Resolved]
